FAERS Safety Report 22705081 (Version 3)
Quarter: 2023Q4

REPORT INFORMATION
  Report Type: Spontaneous
  Country: JP (occurrence: JP)
  Receive Date: 20230714
  Receipt Date: 20231003
  Transmission Date: 20240110
  Serious: Yes (Hospitalization, Other)
  Sender: FDA-Public Use
  Company Number: None

PATIENT
  Age: 54 Year
  Sex: Female

DRUGS (5)
  1. BOTOX [Suspect]
     Active Substance: ONABOTULINUMTOXINA
     Indication: Muscle spasms
     Dosage: TIME INTERVAL: AS NECESSARY: 300 UNITS, ONCE IN 3-4 MONTHS
     Route: 030
     Dates: start: 20120808, end: 20120808
  2. BOTOX [Suspect]
     Active Substance: ONABOTULINUMTOXINA
     Indication: Muscle spasms
     Dosage: TIME INTERVAL: AS NECESSARY: UNITS
     Route: 030
     Dates: start: 20230313, end: 20230313
  3. BOTOX [Suspect]
     Active Substance: ONABOTULINUMTOXINA
     Indication: Muscle spasms
     Dosage: TIME INTERVAL: AS NECESSARY: UNITS
     Route: 030
     Dates: start: 20230313, end: 20230313
  4. BOTOX [Suspect]
     Active Substance: ONABOTULINUMTOXINA
     Indication: Muscle spasms
     Dosage: TIME INTERVAL: AS NECESSARY: UNITS
     Route: 030
     Dates: start: 20230313, end: 20230313
  5. BOTOX [Suspect]
     Active Substance: ONABOTULINUMTOXINA
     Indication: Muscle spasms
     Dosage: TIME INTERVAL: AS NECESSARY: UNITS
     Route: 030
     Dates: start: 20230313, end: 20230313

REACTIONS (6)
  - Fall [Recovered/Resolved]
  - Foot deformity [Recovering/Resolving]
  - Muscle tightness [Recovering/Resolving]
  - Gait disturbance [Recovering/Resolving]
  - Hyperkeratosis [Recovering/Resolving]
  - Aortic dissection [Recovered/Resolved]

NARRATIVE: CASE EVENT DATE: 20141201
